FAERS Safety Report 19599454 (Version 2)
Quarter: 2021Q3

REPORT INFORMATION
  Report Type: Spontaneous
  Country: FR (occurrence: FR)
  Receive Date: 20210722
  Receipt Date: 20210805
  Transmission Date: 20211014
  Serious: Yes (Hospitalization)
  Sender: FDA-Public Use
  Company Number: FR-ORGANON-O2107FRA001747

PATIENT
  Age: 72 Year
  Sex: Female
  Weight: 69 kg

DRUGS (9)
  1. LIPTRUZET [Suspect]
     Active Substance: ATORVASTATIN CALCIUM\EZETIMIBE
     Indication: MYOCARDIAL INFARCTION
     Dosage: 1 DOSAGE FORM, QD; (FORMULATION REPORTED AS: FILM COATED TABLET)
     Route: 048
     Dates: start: 20210208, end: 20210626
  2. LANSOPRAZOLE. [Concomitant]
     Active Substance: LANSOPRAZOLE
     Dosage: UNK
  3. BRILIQUE [Concomitant]
     Active Substance: TICAGRELOR
     Dosage: UNK
  4. REPAGLINIDE. [Concomitant]
     Active Substance: REPAGLINIDE
     Dosage: UNK
  5. ACIDE ACETYLSALICYLIQUE [Concomitant]
     Active Substance: ASPIRIN
     Dosage: UNK
  6. SITAGLIPTINE [Concomitant]
     Active Substance: SITAGLIPTIN
     Dosage: UNK
  7. BISOPROLOL FUMARATE. [Concomitant]
     Active Substance: BISOPROLOL FUMARATE
     Dosage: UNK
  8. LEVOTHYROXINE. [Concomitant]
     Active Substance: LEVOTHYROXINE
     Dosage: UNK, FORMULATION REPORTED AS BREAKABLE TABLET
  9. PERINDOPRIL [Concomitant]
     Active Substance: PERINDOPRIL
     Dosage: UNK

REACTIONS (2)
  - Acute kidney injury [Recovered/Resolved]
  - Rhabdomyolysis [Recovered/Resolved]

NARRATIVE: CASE EVENT DATE: 20210625
